FAERS Safety Report 9942903 (Version 2)
Quarter: 2014Q1

REPORT INFORMATION
  Report Type: Report from Study
  Country: IL (occurrence: IL)
  Receive Date: 20140303
  Receipt Date: 20140303
  Transmission Date: 20141002
  Serious: Yes (Life-Threatening, Hospitalization, Other)
  Sender: FDA-Public Use
  Company Number: IL-ABBVIE-12P-082-0952979-00

PATIENT
  Age: 35 Year
  Sex: Female
  Weight: 36.5 kg

DRUGS (4)
  1. HUMIRA [Suspect]
     Indication: CROHN^S DISEASE
     Route: 058
     Dates: start: 20120404, end: 20120618
  2. ROCEPHIN [Suspect]
     Indication: PRODUCT USED FOR UNKNOWN INDICATION
  3. FLAGYL [Concomitant]
     Indication: CROHN^S DISEASE
     Route: 048
  4. VENOFER [Concomitant]
     Indication: ANAEMIA
     Route: 042

REACTIONS (12)
  - Gastric haemorrhage [Recovered/Resolved]
  - Crohn^s disease [Recovering/Resolving]
  - Pyrexia [Recovered/Resolved]
  - Eye infection [Recovered/Resolved]
  - Lymph node pain [Recovered/Resolved]
  - Chills [Recovered/Resolved]
  - Decreased appetite [Unknown]
  - Intestinal obstruction [Recovered/Resolved]
  - Intestinal obstruction [Recovered/Resolved]
  - Gastrointestinal stoma necrosis [Recovering/Resolving]
  - Anorectal disorder [Not Recovered/Not Resolved]
  - Drug hypersensitivity [Unknown]
